FAERS Safety Report 4690893-5 (Version None)
Quarter: 2005Q2

REPORT INFORMATION
  Report Type: 
  Country: None (occurrence: None)
  Receive Date: 20050615
  Receipt Date: 20050603
  Transmission Date: 20051028
  Serious: Yes (Other)
  Sender: FDA-Public Use
  Company Number: PHRM2005FR01780

PATIENT
  Age: 43 Year
  Sex: Female

DRUGS (1)
  1. FRACTAL [Suspect]
     Dosage: 80 MG, QD
     Route: 048
     Dates: start: 20040701

REACTIONS (3)
  - PAROTITIS [None]
  - SALIVARY GLAND CALCULUS [None]
  - SALIVARY GLAND ENLARGEMENT [None]
